FAERS Safety Report 9123161 (Version 1)
Quarter: 2013Q1

REPORT INFORMATION
  Report Type: Spontaneous
  Country: US (occurrence: None)
  Receive Date: 20130225
  Receipt Date: 20130225
  Transmission Date: 20140127
  Serious: Yes (Other)
  Sender: FDA-Public Use
  Company Number: None

PATIENT
  Sex: 0

DRUGS (1)
  1. EPINEPHRINE [Suspect]
     Indication: SURGERY
     Dates: start: 20130212, end: 20130212

REACTIONS (1)
  - Product quality issue [None]
